FAERS Safety Report 5958219-4 (Version None)
Quarter: 2008Q4

REPORT INFORMATION
  Report Type: 
  Country: None (occurrence: None)
  Receive Date: 20081117
  Receipt Date: 20081117
  Transmission Date: 20090506
  Serious: Yes (Other)
  Sender: FDA-Public Use
  Company Number: None

PATIENT
  Age: 72 Year
  Sex: Male
  Weight: 77.1115 kg

DRUGS (1)
  1. CHANTIX [Suspect]
     Indication: SMOKING CESSATION THERAPY
     Dosage: ONE ONCE A DAY 2 DAYS, 2 A DAY ON THIRD DAY
     Dates: start: 20081110, end: 20081113

REACTIONS (3)
  - CONDITION AGGRAVATED [None]
  - MENTAL DISORDER [None]
  - TOBACCO USER [None]
